FAERS Safety Report 8008551-8 (Version None)
Quarter: 2011Q4

REPORT INFORMATION
  Report Type: 
  Country: None (occurrence: None)
  Receive Date: 20111227
  Receipt Date: 20111222
  Transmission Date: 20120403
  Serious: Yes (Hospitalization)
  Sender: FDA-Public Use
  Company Number: US-JNJFOC-20111105719

PATIENT
  Sex: Female
  Weight: 81.65 kg

DRUGS (2)
  1. STELARA [Suspect]
     Indication: PSORIASIS
     Route: 058
     Dates: start: 20111103
  2. STELARA [Suspect]
     Route: 058
     Dates: start: 20111006

REACTIONS (1)
  - OEDEMA PERIPHERAL [None]
